FAERS Safety Report 4825246-X (Version None)
Quarter: 2005Q4

REPORT INFORMATION
  Report Type: 
  Country: None (occurrence: None)
  Receive Date: 20051109
  Receipt Date: 20051104
  Transmission Date: 20060501
  Serious: Yes (Other)
  Sender: FDA-Public Use
  Company Number: THQ2005A00926

PATIENT
  Age: 31 Year
  Sex: Female

DRUGS (1)
  1. LANSOPRAZOLE [Suspect]
     Dosage: (30 MG) PER ORAL
     Route: 048
     Dates: start: 20050901

REACTIONS (11)
  - ABDOMINAL DISTENSION [None]
  - ARTHRALGIA [None]
  - BONE PAIN [None]
  - CHANGE OF BOWEL HABIT [None]
  - COELIAC DISEASE [None]
  - CONDITION AGGRAVATED [None]
  - FATIGUE [None]
  - FLATULENCE [None]
  - HEADACHE [None]
  - MYALGIA [None]
  - PRURITUS [None]
